FAERS Safety Report 4649056-1 (Version None)
Quarter: 2005Q2

REPORT INFORMATION
  Report Type: 
  Country: None (occurrence: None)
  Receive Date: 20050427
  Receipt Date: 20050412
  Transmission Date: 20051028
  Serious: Yes (Hospitalization)
  Sender: FDA-Public Use
  Company Number: 207884

PATIENT
  Age: 56 Year
  Sex: Female

DRUGS (6)
  1. AVONEX [Suspect]
     Indication: MULTIPLE SCLEROSIS
     Dosage: 30 UG; QW; IM
     Route: 030
     Dates: start: 20020201, end: 20031001
  2. AVONEX [Suspect]
     Indication: MULTIPLE SCLEROSIS
     Dosage: 30 UG; QW; IM
     Route: 030
     Dates: start: 20031001, end: 20041001
  3. PREDNISONE TAB [Concomitant]
  4. VALIUM [Concomitant]
  5. METOPROLOL [Concomitant]
  6. DYAZIDE [Concomitant]

REACTIONS (2)
  - ASEPTIC NECROSIS BONE [None]
  - HIP ARTHROPLASTY [None]
